FAERS Safety Report 6724007-4 (Version None)
Quarter: 2010Q2

REPORT INFORMATION
  Report Type: 
  Country: None (occurrence: None)
  Receive Date: 20100513
  Receipt Date: 20100505
  Transmission Date: 20101027
  Serious: Yes (Hospitalization)
  Sender: FDA-Public Use
  Company Number: A0787840A

PATIENT
  Age: 44 Year
  Sex: Female

DRUGS (2)
  1. AVANDIA [Suspect]
     Indication: DIABETES MELLITUS
     Dosage: 4U TWICE PER DAY
     Route: 048
     Dates: start: 20030601, end: 20061209
  2. AVANDAMET [Suspect]
     Indication: DIABETES MELLITUS
     Dosage: .5TAB TWICE PER DAY
     Dates: start: 20061209, end: 20091101

REACTIONS (1)
  - MYOCARDIAL INFARCTION [None]
